FAERS Safety Report 9205423 (Version 1)
Quarter: 2013Q2

REPORT INFORMATION
  Report Type: Spontaneous
  Country: US (occurrence: US)
  Receive Date: 20130403
  Receipt Date: 20130403
  Transmission Date: 20140414
  Serious: Yes (Other)
  Sender: FDA-Public Use
  Company Number: US-009507513-1303USA013094

PATIENT
  Age: 67 Year
  Sex: Female

DRUGS (1)
  1. ZOCOR [Suspect]
     Dosage: 40 MG, HS
     Route: 048

REACTIONS (7)
  - Loss of consciousness [Unknown]
  - Hypoaesthesia [Unknown]
  - Rash macular [Unknown]
  - Drug hypersensitivity [Unknown]
  - Paraesthesia [Unknown]
  - Urticaria [Unknown]
  - Vomiting [Unknown]
